FAERS Safety Report 21290107 (Version 1)
Quarter: 2022Q3

REPORT INFORMATION
  Report Type: Spontaneous
  Country: US (occurrence: US)
  Receive Date: 20220902
  Receipt Date: 20220902
  Transmission Date: 20221026
  Serious: No
  Sender: FDA-Public Use
  Company Number: US-Millicent Holdings Ltd.-MILL20220298

PATIENT
  Age: 64 Year
  Sex: Female

DRUGS (1)
  1. INTRAROSA [Suspect]
     Active Substance: PRASTERONE
     Indication: Product used for unknown indication
     Dosage: 6.5 MG (EVERY DAY FOR ONE WEEK AND THEN TWICE A WEEK FOR TWO WEEKS LEADING UP TO SURGERY)
     Route: 067
     Dates: start: 20220829

REACTIONS (1)
  - Off label use [Unknown]
